FAERS Safety Report 25429399 (Version 3)
Quarter: 2025Q2

REPORT INFORMATION
  Report Type: Spontaneous
  Country: CN (occurrence: CN)
  Receive Date: 20250612
  Receipt Date: 20250620
  Transmission Date: 20250717
  Serious: Yes (Other)
  Sender: PFIZER
  Company Number: CN-PFIZER INC-PV202500069092

PATIENT
  Age: 22 Year
  Sex: Female
  Weight: 84 kg

DRUGS (11)
  1. METHYLPREDNISOLONE SODIUM SUCCINATE [Suspect]
     Active Substance: METHYLPREDNISOLONE SODIUM SUCCINATE
     Indication: Polymyositis
     Dosage: 60 MG, 1X/DAY
     Route: 042
     Dates: start: 20200516, end: 2020
  2. METHYLPREDNISOLONE SODIUM SUCCINATE [Suspect]
     Active Substance: METHYLPREDNISOLONE SODIUM SUCCINATE
     Indication: Pustular psoriasis
  3. METHYLPREDNISOLONE SODIUM SUCCINATE [Suspect]
     Active Substance: METHYLPREDNISOLONE SODIUM SUCCINATE
     Indication: Myositis
  4. METHYLPREDNISOLONE [Suspect]
     Active Substance: METHYLPREDNISOLONE
     Indication: Polymyositis
     Dosage: 24 MG, DAILY
     Route: 048
     Dates: start: 2020
  5. METHYLPREDNISOLONE [Suspect]
     Active Substance: METHYLPREDNISOLONE
     Indication: Pustular psoriasis
     Dosage: 10 MG, DAILY
     Route: 048
     Dates: start: 2020
  6. METHYLPREDNISOLONE [Suspect]
     Active Substance: METHYLPREDNISOLONE
     Indication: Myositis
  7. METHOTREXATE [Suspect]
     Active Substance: METHOTREXATE
     Indication: Polymyositis
     Dosage: 7.5 MG, WEEKLY
     Route: 048
     Dates: start: 20200516, end: 2020
  8. METHOTREXATE [Suspect]
     Active Substance: METHOTREXATE
     Indication: Pustular psoriasis
     Dosage: 25 MG, WEEKLY
     Route: 048
     Dates: start: 2020, end: 2020
  9. METHOTREXATE [Suspect]
     Active Substance: METHOTREXATE
     Indication: Myositis
  10. ETANERCEPT [Concomitant]
     Active Substance: ETANERCEPT
     Indication: Psoriasis
     Dosage: 50 MG, WEEKLY
  11. ETANERCEPT [Concomitant]
     Active Substance: ETANERCEPT
     Indication: Myositis

REACTIONS (1)
  - Pneumocystis jirovecii pneumonia [Recovering/Resolving]

NARRATIVE: CASE EVENT DATE: 20200801
